FAERS Safety Report 16639115 (Version 5)
Quarter: 2020Q1

REPORT INFORMATION
  Report Type: Report from Study
  Country: CA (occurrence: CA)
  Receive Date: 20190726
  Receipt Date: 20200325
  Transmission Date: 20200409
  Serious: Yes (Hospitalization, Other)
  Sender: FDA-Public Use
  Company Number: CA-TAKEDA-2019TUS044985

PATIENT
  Age: 65 Year
  Sex: Male

DRUGS (2)
  1. VEDOLIZUMAB [Suspect]
     Active Substance: VEDOLIZUMAB
     Indication: CROHN^S DISEASE
     Dosage: 300 MILLIGRAM
     Route: 042
     Dates: start: 20190226
  2. VEDOLIZUMAB [Suspect]
     Active Substance: VEDOLIZUMAB
     Dosage: 300 MILLIGRAM
     Route: 042

REACTIONS (10)
  - Pneumonia [Unknown]
  - Oedema [Unknown]
  - Crepitations [Unknown]
  - Cough [Not Recovered/Not Resolved]
  - Gangrene [Unknown]
  - Muscle twitching [Unknown]
  - Influenza [Unknown]
  - Diabetic complication [Unknown]
  - Sepsis [Unknown]
  - Blood test abnormal [Unknown]
